FAERS Safety Report 17713336 (Version 1)
Quarter: 2020Q2

REPORT INFORMATION
  Report Type: Spontaneous
  Country: ES (occurrence: ES)
  Receive Date: 20200427
  Receipt Date: 20200427
  Transmission Date: 20200714
  Serious: Yes (Other)
  Sender: FDA-Public Use
  Company Number: ES-ELI_LILLY_AND_COMPANY-ES202004007295

PATIENT
  Sex: Female
  Weight: 50 kg

DRUGS (12)
  1. HUMAN INSULIN (RDNA ORIGIN) REGULAR [Suspect]
     Active Substance: INSULIN HUMAN
     Dosage: 8 INTERNATIONAL UNIT, BID
     Route: 065
     Dates: start: 20200415
  2. LEXATIN [BROMAZEPAM] [Concomitant]
     Active Substance: BROMAZEPAM
     Indication: INSOMNIA
     Dosage: 1 DOSAGE FORM, DAILY
     Dates: start: 2019
  3. PARACETAMOL [Concomitant]
     Active Substance: ACETAMINOPHEN
     Indication: PAIN
     Dosage: 1 DOSAGE FORM, EVERY 8 HRS
     Dates: start: 202001
  4. HUMAN INSULIN (RDNA ORIGIN) REGULAR [Suspect]
     Active Substance: INSULIN HUMAN
     Indication: DIABETES MELLITUS
     Dosage: 14 INTERNATIONAL UNIT, BID
     Route: 065
     Dates: start: 20200415
  5. ALGI MABO [Concomitant]
     Indication: PAIN
     Dosage: 1 DOSAGE FORM, EVERY 8 HRS
     Dates: start: 202001
  6. OXALIPLATIN. [Suspect]
     Active Substance: OXALIPLATIN
     Indication: GASTRIC CANCER
     Dosage: UNK UNK, UNKNOWN
     Route: 065
     Dates: start: 20200415
  7. ADOLONTA [Concomitant]
     Active Substance: TRAMADOL HYDROCHLORIDE
     Indication: PAIN
     Dosage: 4 DOSAGE FORM, EVERY 8 HRS
     Dates: start: 202001
  8. HUMALOG [Suspect]
     Active Substance: INSULIN LISPRO
     Indication: DIABETES MELLITUS
     Dosage: 6 INTERNATIONAL UNIT, EVERY HOUR
     Route: 058
     Dates: start: 202003, end: 20200415
  9. TWYNSTA [Concomitant]
     Active Substance: AMLODIPINE BESYLATE\TELMISARTAN
     Indication: HYPERTENSION
     Dosage: 1 DOSAGE FORM, DAILY
     Dates: start: 202001
  10. FERPLEX [Concomitant]
     Indication: PAIN
     Dosage: 1 DOSAGE FORM, DAILY
     Dates: start: 202003
  11. HUMAN INSULIN (RDNA ORIGIN) REGULAR [Suspect]
     Active Substance: INSULIN HUMAN
     Dosage: 18 INTERNATIONAL UNIT, BID
     Route: 065
     Dates: start: 20200415
  12. HUMAN INSULIN (RDNA ORIGIN) REGULAR [Suspect]
     Active Substance: INSULIN HUMAN
     Dosage: 10 INTERNATIONAL UNIT, BID
     Route: 065
     Dates: start: 20200415

REACTIONS (4)
  - Gastrointestinal neoplasm [Unknown]
  - Fatigue [Unknown]
  - Blood glucose increased [Unknown]
  - Dizziness [Unknown]
